FAERS Safety Report 6261257-8 (Version None)
Quarter: 2009Q3

REPORT INFORMATION
  Report Type: 
  Country: None (occurrence: None)
  Receive Date: 20090709
  Receipt Date: 20080929
  Transmission Date: 20100115
  Serious: No
  Sender: FDA-Public Use
  Company Number: US-KINGPHARMUSA00001-K200801142

PATIENT
  Sex: Female
  Weight: 74.83 kg

DRUGS (3)
  1. LEVOXYL [Suspect]
     Indication: HYPOTHYROIDISM
     Dosage: 75 MCG, QD
     Route: 048
     Dates: start: 20080301
  2. PLAQUENIL [Concomitant]
     Indication: ANTIPHOSPHOLIPID ANTIBODIES
     Dosage: UNK, UNK
  3. LISINOPRIL [Concomitant]
     Indication: HYPERTENSION
     Dosage: UNK, UNK

REACTIONS (2)
  - CHOKING SENSATION [None]
  - SENSATION OF FOREIGN BODY [None]
